FAERS Safety Report 11099586 (Version 3)
Quarter: 2015Q3

REPORT INFORMATION
  Report Type: Spontaneous
  Country: US (occurrence: US)
  Receive Date: 20150508
  Receipt Date: 20150731
  Transmission Date: 20151125
  Serious: Yes (Other)
  Sender: FDA-Public Use
  Company Number: US-JNJFOC-20150503227

PATIENT
  Age: 58 Year
  Sex: Female
  Weight: 72.58 kg

DRUGS (2)
  1. OTHER THERAPEUTIC MEDICATION [Concomitant]
     Active Substance: UNSPECIFIED INGREDIENT
     Indication: ARTHRALGIA
     Route: 065
     Dates: start: 2015, end: 2015
  2. BENGAY ULTRA STRENGTH [Suspect]
     Active Substance: METHYL SALICYLATE
     Indication: PAIN
     Route: 061
     Dates: start: 20150504, end: 20150504

REACTIONS (2)
  - Application site burn [Recovered/Resolved]
  - Application site erythema [Recovered/Resolved]

NARRATIVE: CASE EVENT DATE: 20150504
